FAERS Safety Report 4379685-4 (Version None)
Quarter: 2004Q2

REPORT INFORMATION
  Report Type: 
  Country: None (occurrence: None)
  Receive Date: 20040610
  Receipt Date: 20040526
  Transmission Date: 20050107
  Serious: Yes (Hospitalization, Other)
  Sender: FDA-Public Use
  Company Number: 04-200-0768

PATIENT
  Age: 78 Year
  Sex: Female
  Weight: 83 kg

DRUGS (2)
  1. DAUNORUBICIN HCL [Suspect]
     Indication: ACUTE MYELOID LEUKAEMIA
     Dosage: 45 MG/M2 IV DAYS 1, 3
     Route: 042
     Dates: start: 20040410
  2. REFER TO ATTACHMENT (ELI LILLY #US-0405102903) [Concomitant]

REACTIONS (1)
  - CEREBRAL HAEMORRHAGE [None]
